FAERS Safety Report 14011826 (Version 2)
Quarter: 2018Q2

REPORT INFORMATION
  Report Type: Report from Study
  Country: GB (occurrence: GB)
  Receive Date: 20170926
  Receipt Date: 20180608
  Transmission Date: 20180711
  Serious: Yes (Death, Hospitalization)
  Sender: FDA-Public Use
  Company Number: GB-INCYTE CORPORATION-2017IN008080

PATIENT

DRUGS (2)
  1. HYDROXYCARBAMIDE [Concomitant]
     Active Substance: HYDROXYUREA
     Indication: MYELOFIBROSIS
     Dosage: 1.5 G, QD
     Route: 065
     Dates: start: 20141003, end: 20170125
  2. JAKAVI [Suspect]
     Active Substance: RUXOLITINIB
     Indication: MYELOFIBROSIS
     Dosage: 20 MG, BID
     Route: 065
     Dates: start: 20121129, end: 20170125

REACTIONS (6)
  - Terminal state [Unknown]
  - Dyspnoea [Unknown]
  - Acute myeloid leukaemia [Fatal]
  - Cardiac failure congestive [Unknown]
  - Pneumonia [Fatal]
  - Atrial fibrillation [Unknown]

NARRATIVE: CASE EVENT DATE: 20161212
